FAERS Safety Report 10224120 (Version 5)
Quarter: 2015Q3

REPORT INFORMATION
  Report Type: Report from Study
  Country: NL (occurrence: NL)
  Receive Date: 20140609
  Receipt Date: 20150709
  Transmission Date: 20151125
  Serious: Yes (Hospitalization, Other)
  Sender: FDA-Public Use
  Company Number: PHHY2014NL068089

PATIENT
  Age: 37 Year
  Sex: Female
  Weight: 60 kg

DRUGS (2)
  1. ZYKADIA [Suspect]
     Active Substance: CERITINIB
     Indication: NON-SMALL CELL LUNG CANCER
     Dosage: 750 MG, BID
     Route: 048
     Dates: start: 20140418, end: 20140528
  2. ZYKADIA [Suspect]
     Active Substance: CERITINIB
     Dosage: 600 MG, BID
     Route: 048
     Dates: start: 20140611, end: 20140617

REACTIONS (17)
  - Nausea [Recovered/Resolved]
  - Viral pericarditis [Recovered/Resolved]
  - Pleural effusion [Recovered/Resolved]
  - Pericardial rub [Recovered/Resolved]
  - Vomiting [Recovered/Resolved]
  - Pleuritic pain [Recovered/Resolved with Sequelae]
  - Pain [Recovered/Resolved]
  - Dyspnoea [Recovered/Resolved with Sequelae]
  - Diarrhoea [Recovered/Resolved]
  - Fatigue [Not Recovered/Not Resolved]
  - Chest pain [Recovered/Resolved with Sequelae]
  - Pericardial effusion [Recovered/Resolved]
  - Pleurisy [Recovered/Resolved]
  - Pericarditis [Recovered/Resolved]
  - Dizziness [Recovered/Resolved]
  - Non-small cell lung cancer [Unknown]
  - Malignant neoplasm progression [Unknown]

NARRATIVE: CASE EVENT DATE: 20140422
